FAERS Safety Report 13289032 (Version 1)
Quarter: 2017Q1

REPORT INFORMATION
  Report Type: Spontaneous
  Country: RO (occurrence: RO)
  Receive Date: 20170302
  Receipt Date: 20170302
  Transmission Date: 20170428
  Serious: Yes (Death, Life-Threatening, Hospitalization, Other)
  Sender: FDA-Public Use
  Company Number: RO-STRIDES ARCOLAB LIMITED-2017SP003436

PATIENT

DRUGS (5)
  1. LINEZOLID. [Concomitant]
     Active Substance: LINEZOLID
     Indication: STAPHYLOCOCCAL INFECTION
     Dosage: 600 MG, EVERY 12 HRS
     Route: 065
  2. CLINDAMYCIN. [Concomitant]
     Active Substance: CLINDAMYCIN
     Indication: STAPHYLOCOCCAL INFECTION
     Dosage: 600 MG, EVERY 8 HRS
     Route: 065
  3. VANCOMYCIN [Suspect]
     Active Substance: VANCOMYCIN
     Indication: SEPSIS
     Dosage: 1 G, EVERY 12 HRS
     Route: 065
  4. VANCOMYCIN [Suspect]
     Active Substance: VANCOMYCIN
     Dosage: UNK, UNKNOWN
     Route: 065
  5. IMIPENEM [Concomitant]
     Active Substance: IMIPENEM
     Indication: SEPSIS
     Dosage: 1 G, EVERY 8 HOURS
     Route: 065

REACTIONS (4)
  - Hepatic function abnormal [Fatal]
  - Acute respiratory distress syndrome [Fatal]
  - Coma [Fatal]
  - Drug ineffective [Fatal]
